FAERS Safety Report 12500881 (Version 2)
Quarter: 2016Q3

REPORT INFORMATION
  Report Type: Spontaneous
  Country: US (occurrence: US)
  Receive Date: 20160627
  Receipt Date: 20160815
  Transmission Date: 20161109
  Serious: Yes (Other)
  Sender: FDA-Public Use
  Company Number: US-AKORN PHARMACEUTICALS-2016AKN00372

PATIENT
  Sex: Female
  Weight: 72.56 kg

DRUGS (5)
  1. RETIN-A [Concomitant]
     Active Substance: TRETINOIN
  2. MYORISAN [Suspect]
     Active Substance: ISOTRETINOIN
     Dosage: 40 MG, EVERY 48 HOURS
     Route: 048
     Dates: start: 201605, end: 201605
  3. MYORISAN [Suspect]
     Active Substance: ISOTRETINOIN
     Dosage: UNK
     Dates: start: 20160404
  4. CLINDAMYCIN [Concomitant]
     Active Substance: CLINDAMYCIN\CLINDAMYCIN PHOSPHATE
  5. MYORISAN [Suspect]
     Active Substance: ISOTRETINOIN
     Indication: ACNE
     Dosage: 40 MG, 1X/DAY
     Route: 048
     Dates: start: 20160505, end: 201605

REACTIONS (13)
  - Nasopharyngitis [Recovered/Resolved]
  - Nausea [Recovered/Resolved]
  - Diarrhoea [Recovered/Resolved]
  - Abnormal behaviour [Recovered/Resolved]
  - Acne [Not Recovered/Not Resolved]
  - Contusion [Recovered/Resolved]
  - Irritability [Recovered/Resolved]
  - Skin discolouration [Unknown]
  - Product substitution issue [Unknown]
  - Hair disorder [Not Recovered/Not Resolved]
  - Vomiting [Unknown]
  - Abdominal pain [Recovered/Resolved]
  - Unevaluable event [Unknown]

NARRATIVE: CASE EVENT DATE: 2016
